FAERS Safety Report 5052846-7 (Version None)
Quarter: 2006Q3

REPORT INFORMATION
  Report Type: 
  Country: None (occurrence: None)
  Receive Date: 20060712
  Receipt Date: 20060630
  Transmission Date: 20061208
  Serious: Yes (Life-Threatening, Hospitalization)
  Sender: FDA-Public Use
  Company Number: 200612770BCC

PATIENT
  Age: 67 Year
  Sex: Male
  Weight: 75.2971 kg

DRUGS (4)
  1. ALEVE (CAPLET) [Suspect]
     Indication: BACK PAIN
     Dosage: 220 MG, ONCE, ORAL
     Route: 048
     Dates: start: 20060625
  2. NEXIUM [Concomitant]
  3. PRAVACHOL [Concomitant]
  4. ASPIRIN [Concomitant]

REACTIONS (6)
  - ANAPHYLACTIC REACTION [None]
  - CONVULSION [None]
  - FOAMING AT MOUTH [None]
  - HYPERSENSITIVITY [None]
  - LOSS OF CONSCIOUSNESS [None]
  - RESPIRATORY ARREST [None]
